FAERS Safety Report 8593016-5 (Version None)
Quarter: 2012Q3

REPORT INFORMATION
  Report Type: 
  Country: None (occurrence: None)
  Receive Date: 20120814
  Receipt Date: 20120802
  Transmission Date: 20120928
  Serious: Yes (Other)
  Sender: FDA-Public Use
  Company Number: US-ASTRAZENECA-2010SE53871

PATIENT
  Age: 70 Year
  Sex: Female

DRUGS (9)
  1. NEXIUM [Suspect]
     Indication: GASTRITIS
     Route: 048
  2. NEXIUM [Suspect]
     Indication: DUODENITIS
     Route: 048
  3. NEXIUM [Suspect]
     Route: 048
  4. ALEVE [Concomitant]
  5. ALENDRONATE SODIUM [Concomitant]
  6. NEXIUM [Suspect]
     Route: 048
  7. METHOTREXATE [Concomitant]
  8. NEXIUM [Suspect]
     Route: 048
  9. NEXIUM [Suspect]
     Indication: ABDOMINAL PAIN UPPER
     Route: 048

REACTIONS (4)
  - INCREASED UPPER AIRWAY SECRETION [None]
  - SINUSITIS [None]
  - GASTRIC ULCER [None]
  - MULTIPLE ALLERGIES [None]
